FAERS Safety Report 21215253 (Version 1)
Quarter: 2022Q3

REPORT INFORMATION
  Report Type: Spontaneous
  Country: US (occurrence: US)
  Receive Date: 20220816
  Receipt Date: 20220816
  Transmission Date: 20221026
  Serious: Yes (Other)
  Sender: FDA-Public Use
  Company Number: US-MYLANLABS-2022M1086124

PATIENT
  Sex: Female
  Weight: 58.97 kg

DRUGS (1)
  1. ESTRADIOL TRANSDERMAL SYSTEM [Suspect]
     Active Substance: ESTRADIOL
     Indication: Product used for unknown indication
     Dosage: 0.0375MG, QD (TWICE-WEEKLY)
     Route: 062
     Dates: start: 202006

REACTIONS (4)
  - Haemorrhage [Unknown]
  - Migraine [Unknown]
  - Application site burn [Unknown]
  - Blood pressure abnormal [Unknown]
